FAERS Safety Report 7687823-0 (Version None)
Quarter: 2011Q3

REPORT INFORMATION
  Report Type: 
  Country: None (occurrence: None)
  Receive Date: 20110817
  Receipt Date: 20110805
  Transmission Date: 20111222
  Serious: Yes (Other)
  Sender: FDA-Public Use
  Company Number: CA-JNJFOC-20110312898

PATIENT
  Sex: Female
  Weight: 73.1 kg

DRUGS (1)
  1. SIMPONI [Suspect]
     Indication: ANKYLOSING SPONDYLITIS
     Route: 058
     Dates: start: 20100311, end: 20110406

REACTIONS (4)
  - BRONCHITIS [None]
  - SINUSITIS [None]
  - CHRONIC LYMPHOCYTIC LEUKAEMIA [None]
  - INFECTION [None]
